FAERS Safety Report 10274078 (Version 2)
Quarter: 2014Q3

REPORT INFORMATION
  Report Type: Spontaneous
  Country: US (occurrence: US)
  Receive Date: 20140702
  Receipt Date: 20140820
  Transmission Date: 20150326
  Serious: Yes (Hospitalization)
  Sender: FDA-Public Use
  Company Number: US-BAYER-2014-096400

PATIENT
  Age: 22 Year
  Sex: Female
  Weight: 99.77 kg

DRUGS (1)
  1. MIRENA [Suspect]
     Active Substance: LEVONORGESTREL
     Indication: CONTRACEPTION
     Dosage: 20 MCG/24HR, CONT
     Route: 015
     Dates: start: 20110104, end: 20120604

REACTIONS (10)
  - Injury [None]
  - Ovarian cyst [None]
  - Uterine perforation [None]
  - Drug ineffective [None]
  - Medical device pain [None]
  - Pelvic pain [None]
  - Mental disorder [None]
  - Ectopic pregnancy with contraceptive device [None]
  - Post procedural discomfort [None]
  - Polycystic ovaries [None]

NARRATIVE: CASE EVENT DATE: 20110104
